FAERS Safety Report 7966640-8 (Version None)
Quarter: 2011Q4

REPORT INFORMATION
  Report Type: 
  Country: None (occurrence: None)
  Receive Date: 20111209
  Receipt Date: 20111205
  Transmission Date: 20120403
  Serious: No
  Sender: FDA-Public Use
  Company Number: US-BIOGENIDEC-2011BI025587

PATIENT
  Sex: Female

DRUGS (1)
  1. TYSABRI [Suspect]
     Indication: MULTIPLE SCLEROSIS
     Route: 042
     Dates: start: 20090330

REACTIONS (5)
  - BACK PAIN [None]
  - SPINAL COLUMN STENOSIS [None]
  - PAIN [None]
  - NERVE ROOT INJURY [None]
  - CENTRAL NERVOUS SYSTEM LESION [None]
